FAERS Safety Report 6223130-0 (Version None)
Quarter: 2009Q2

REPORT INFORMATION
  Report Type: 
  Country: None (occurrence: None)
  Receive Date: 20090611
  Receipt Date: 20090602
  Transmission Date: 20091009
  Serious: Yes (Other)
  Sender: FDA-Public Use
  Company Number: US-AMGEN-QUU349906

PATIENT
  Sex: Female

DRUGS (1)
  1. ENBREL [Suspect]
     Indication: RHEUMATOID ARTHRITIS
     Route: 058
     Dates: start: 20080708

REACTIONS (8)
  - BLOOD TEST ABNORMAL [None]
  - DRY EYE [None]
  - HAEMORRHAGE [None]
  - HYPOTHYROIDISM [None]
  - IMPAIRED HEALING [None]
  - INJECTION SITE ERYTHEMA [None]
  - INJECTION SITE PAIN [None]
  - NAUSEA [None]
